FAERS Safety Report 17771919 (Version 3)
Quarter: 2020Q3

REPORT INFORMATION
  Report Type: Spontaneous
  Country: US (occurrence: US)
  Receive Date: 20200512
  Receipt Date: 20200805
  Transmission Date: 20201102
  Serious: No
  Sender: FDA-Public Use
  Company Number: US-LEXICON PHARMACEUTICALS, INC-20-1606-00344

PATIENT
  Age: 59 Year
  Sex: Male

DRUGS (4)
  1. METFORMIN [Suspect]
     Active Substance: METFORMIN HYDROCHLORIDE
  2. OCTREOTIDE. [Concomitant]
     Active Substance: OCTREOTIDE
  3. XERMELO [Suspect]
     Active Substance: TELOTRISTAT ETHYL
     Indication: SMALL INTESTINE CARCINOMA
     Dates: start: 20200214
  4. SANDOSTATIN [Concomitant]
     Active Substance: OCTREOTIDE ACETATE

REACTIONS (7)
  - Flushing [Unknown]
  - Stress at work [Unknown]
  - Blood glucose increased [Unknown]
  - Defaecation urgency [Unknown]
  - Product dose omission issue [Unknown]
  - Off label use [Not Recovered/Not Resolved]
  - Diarrhoea [Unknown]
